FAERS Safety Report 19464427 (Version 3)
Quarter: 2021Q3

REPORT INFORMATION
  Report Type: Spontaneous
  Country: US (occurrence: US)
  Receive Date: 20210626
  Receipt Date: 20210708
  Transmission Date: 20211014
  Serious: No
  Sender: FDA-Public Use
  Company Number: US-SA-2021SA157341

PATIENT
  Sex: Male

DRUGS (20)
  1. SORILUX [Concomitant]
     Active Substance: CALCIPOTRIENE
  2. BRYHALI [Concomitant]
     Active Substance: HALOBETASOL PROPIONATE
     Dosage: 80MG
  3. VITAMIN B COMPLEX [Concomitant]
     Active Substance: CYANOCOBALAMIN\DEXPANTHENOL\NIACINAMIDE\PYRIDOXINE HYDROCHLORIDE\RIBOFLAVIN 5^-PHOSPHATE SODIUM\THIAMINE HYDROCHLORIDE\VITAMIN B COMPLEX
  4. SILIQ [Suspect]
     Active Substance: BRODALUMAB
     Dosage: 25MG
  5. TALTZ [Concomitant]
     Active Substance: IXEKIZUMAB
  6. SORIATANE [Concomitant]
     Active Substance: ACITRETIN
  7. DESOXIMETASONE. [Concomitant]
     Active Substance: DESOXIMETASONE
  8. DUPIXENT [Suspect]
     Active Substance: DUPILUMAB
     Indication: DERMATITIS ATOPIC
     Dosage: 300 MG, QOW
     Route: 058
  9. LIDOCAINE. [Concomitant]
     Active Substance: LIDOCAINE
  10. VALTREX [Concomitant]
     Active Substance: VALACYCLOVIR HYDROCHLORIDE
  11. HALOG [Concomitant]
     Active Substance: HALCINONIDE
  12. TOPICORT [Concomitant]
     Active Substance: DESOXIMETASONE
  13. ZOFRAN [Concomitant]
     Active Substance: ONDANSETRON HYDROCHLORIDE
  14. METHOTREXATE. [Concomitant]
     Active Substance: METHOTREXATE
  15. EPIDIOLEX [Concomitant]
     Active Substance: CANNABIDIOL
     Dosage: 80MG
  16. FOLIC ACID. [Concomitant]
     Active Substance: FOLIC ACID
  17. MINOCYCLINE HYDROCHLORIDE. [Concomitant]
     Active Substance: MINOCYCLINE HYDROCHLORIDE
  18. SILIQ [Suspect]
     Active Substance: BRODALUMAB
  19. ULTRAVATE [Concomitant]
     Active Substance: HALOBETASOL PROPIONATE
  20. CALCIPOTRIENE. [Concomitant]
     Active Substance: CALCIPOTRIENE

REACTIONS (8)
  - Ulcer [Unknown]
  - Pain [Unknown]
  - Depression [Unknown]
  - Product dose omission issue [Unknown]
  - Skin ulcer [Unknown]
  - Vomiting [Unknown]
  - Condition aggravated [Unknown]
  - Gastrointestinal disorder [Unknown]
